FAERS Safety Report 6272574-X (Version None)
Quarter: 2009Q3

REPORT INFORMATION
  Report Type: 
  Country: None (occurrence: None)
  Receive Date: 20090713
  Receipt Date: 20090402
  Transmission Date: 20100115
  Serious: Yes (Disabling)
  Sender: FDA-Public Use
  Company Number: 625732

PATIENT
  Age: 77 Year
  Sex: Female
  Weight: 104.3 kg

DRUGS (5)
  1. BONIVA [Suspect]
     Indication: OSTEOPOROSIS
     Dosage: 150 MG  1 PER MONTH  ORAL
     Route: 048
     Dates: start: 20090401, end: 20090402
  2. TRICOR [Concomitant]
  3. CALCIUM/VITAMIN D (CALCIUM/VITAMIN D NOS) [Concomitant]
  4. FOLIC ACID [Concomitant]
  5. PRILOSEC [Concomitant]

REACTIONS (8)
  - ARTHRALGIA [None]
  - ASTHENIA [None]
  - BONE PAIN [None]
  - DIARRHOEA [None]
  - GAIT DISTURBANCE [None]
  - MYALGIA [None]
  - OEDEMA PERIPHERAL [None]
  - PAIN IN EXTREMITY [None]
